FAERS Safety Report 18022469 (Version 2)
Quarter: 2020Q3

REPORT INFORMATION
  Report Type: Spontaneous
  Country: FR (occurrence: FR)
  Receive Date: 20200715
  Receipt Date: 20200728
  Transmission Date: 20201103
  Serious: Yes (Hospitalization, Other)
  Sender: FDA-Public Use
  Company Number: FR-ROCHE-2632184

PATIENT
  Age: 59 Year
  Sex: Female

DRUGS (2)
  1. VITABACT [Concomitant]
     Active Substance: PICLOXYDINE DIHYDROCHLORIDE
     Indication: PRODUCT USED FOR UNKNOWN INDICATION
     Route: 065
  2. LUCENTIS [Suspect]
     Active Substance: RANIBIZUMAB
     Indication: DIABETIC RETINAL OEDEMA
     Route: 050
     Dates: start: 20200309

REACTIONS (6)
  - Endophthalmitis [Unknown]
  - Hypertonia [Unknown]
  - Non-infectious endophthalmitis [Unknown]
  - Visual acuity reduced [Unknown]
  - Anterior chamber flare [Unknown]
  - Eye pain [Unknown]

NARRATIVE: CASE EVENT DATE: 20200311
